FAERS Safety Report 17975181 (Version 1)
Quarter: 2020Q3

REPORT INFORMATION
  Report Type: Spontaneous
  Country: US (occurrence: US)
  Receive Date: 20200702
  Receipt Date: 20200702
  Transmission Date: 20201103
  Serious: No
  Sender: FDA-Public Use
  Company Number: US-BAYER-2020-131795

PATIENT
  Sex: Female

DRUGS (1)
  1. ALIQOPA [Suspect]
     Active Substance: COPANLISIB
     Indication: BREAST CANCER

REACTIONS (3)
  - Drug intolerance [None]
  - Off label use [None]
  - Product use in unapproved indication [None]
